FAERS Safety Report 9556447 (Version 1)
Quarter: 2013Q3

REPORT INFORMATION
  Report Type: Spontaneous
  Country: FR (occurrence: FR)
  Receive Date: 20130926
  Receipt Date: 20130926
  Transmission Date: 20140515
  Serious: Yes (Death)
  Sender: FDA-Public Use
  Company Number: FR-MERCK-1309FRA007847

PATIENT
  Age: 69 Year
  Sex: Male

DRUGS (6)
  1. JANUMET [Suspect]
     Dosage: UNK
     Route: 048
     Dates: end: 20130701
  2. INEXIUM [Concomitant]
  3. DIAMICRON [Concomitant]
  4. TAHOR [Concomitant]
  5. COKENZEN [Concomitant]
  6. PRADAXA [Concomitant]

REACTIONS (1)
  - Lactic acidosis [Fatal]
